FAERS Safety Report 18195648 (Version 2)
Quarter: 2020Q3

REPORT INFORMATION
  Report Type: Spontaneous
  Country: GB (occurrence: GB)
  Receive Date: 20200825
  Receipt Date: 20200909
  Transmission Date: 20201103
  Serious: No
  Sender: FDA-Public Use
  Company Number: GB-ALLERGAN-2031613US

PATIENT
  Sex: Male

DRUGS (2)
  1. DEX UNK [Suspect]
     Active Substance: UNSPECIFIED INGREDIENT
     Indication: PRODUCT USED FOR UNKNOWN INDICATION
     Dosage: UNK
     Route: 065
  2. AXITINIB [Suspect]
     Active Substance: AXITINIB
     Indication: RENAL CANCER METASTATIC
     Dosage: FULL DOSE
     Dates: start: 202001

REACTIONS (6)
  - Mucosal inflammation [Unknown]
  - Hypertension [Unknown]
  - Back pain [Unknown]
  - Blood pressure decreased [Unknown]
  - Fatigue [Unknown]
  - Chills [Unknown]
